FAERS Safety Report 16877411 (Version 1)
Quarter: 2019Q4

REPORT INFORMATION
  Report Type: Spontaneous
  Country: ES (occurrence: ES)
  Receive Date: 20191002
  Receipt Date: 20191002
  Transmission Date: 20200122
  Serious: Yes (Hospitalization, Other)
  Sender: FDA-Public Use
  Company Number: ES-PFIZER INC-2019418397

PATIENT
  Age: 68 Year
  Sex: Male

DRUGS (3)
  1. FOLINATO CALCICO G.E.S [Concomitant]
     Indication: CHEMOTHERAPY
     Dosage: 800 MG, EVERY 3 MONTHS
     Route: 042
     Dates: start: 20190626
  2. FLUOROURACIL. [Concomitant]
     Active Substance: FLUOROURACIL
     Indication: CHEMOTHERAPY
     Dosage: 5292 MG, EVERY 3 MONTHS
     Route: 042
     Dates: start: 20190626
  3. OXALIPLATIN HOSPIRA [Suspect]
     Active Substance: OXALIPLATIN
     Indication: CHEMOTHERAPY
     Dosage: 129 MG, SINGLE
     Route: 042
     Dates: start: 20190626, end: 20190626

REACTIONS (1)
  - Tubulointerstitial nephritis [Recovered/Resolved]

NARRATIVE: CASE EVENT DATE: 20190626
